FAERS Safety Report 9165759 (Version 1)
Quarter: 2013Q1

REPORT INFORMATION
  Report Type: Spontaneous
  Country: GB (occurrence: None)
  Receive Date: 20130228
  Receipt Date: 20130228
  Transmission Date: 20140127
  Serious: Yes (Other)
  Sender: FDA-Public Use
  Company Number: 2013AP003240

PATIENT
  Age: 20 Year
  Sex: Female

DRUGS (2)
  1. OMEPRAZOLE (OMEPRAZOLE) [Suspect]
     Indication: PRODUCT USED FOR UNKNOWN INDICATION
  2. GAVISCON /00237601/ (GAVISCON/00237601/) [Concomitant]

REACTIONS (3)
  - Vaginal haemorrhage [None]
  - Foetal death [None]
  - Maternal drugs affecting foetus [None]
